FAERS Safety Report 19138898 (Version 1)
Quarter: 2021Q2

REPORT INFORMATION
  Report Type: Spontaneous
  Country: KR (occurrence: KR)
  Receive Date: 20210415
  Receipt Date: 20210415
  Transmission Date: 20210717
  Serious: Yes (Hospitalization, Other)
  Sender: FDA-Public Use
  Company Number: KR-AMGEN-KORSP2021052560

PATIENT
  Age: 25 Year
  Sex: Male

DRUGS (3)
  1. XGEVA [Suspect]
     Active Substance: DENOSUMAB
     Indication: BONE GIANT CELL TUMOUR
     Dosage: UNK, QWK
     Route: 065
  2. XGEVA [Suspect]
     Active Substance: DENOSUMAB
     Dosage: UNK UNK, QMO
     Route: 065
  3. XGEVA [Suspect]
     Active Substance: DENOSUMAB
     Dosage: UNK UNK, Q2MO
     Route: 065

REACTIONS (4)
  - Impaired healing [Not Recovered/Not Resolved]
  - Off label use [Unknown]
  - Metastasis [Unknown]
  - Dental caries [Unknown]

NARRATIVE: CASE EVENT DATE: 202103
